FAERS Safety Report 10008403 (Version 2)
Quarter: 2014Q1

REPORT INFORMATION
  Report Type: Spontaneous
  Country: US (occurrence: US)
  Receive Date: 20140313
  Receipt Date: 20140313
  Transmission Date: 20141002
  Serious: No
  Sender: FDA-Public Use
  Company Number: US-GILEAD-2013-0075338

PATIENT
  Age: 53 Year
  Sex: Female

DRUGS (3)
  1. LETAIRIS [Suspect]
     Indication: PULMONARY ARTERIAL HYPERTENSION
     Dosage: 10 MG, QD
     Route: 048
     Dates: start: 20120515
  2. REMODULIN [Suspect]
     Route: 042
  3. ADCIRCA [Concomitant]

REACTIONS (2)
  - Catheter site erythema [Unknown]
  - Catheter site pruritus [Unknown]
